FAERS Safety Report 6102513-3 (Version None)
Quarter: 2009Q1

REPORT INFORMATION
  Report Type: 
  Country: None (occurrence: None)
  Receive Date: 20090304
  Receipt Date: 20080710
  Transmission Date: 20090719
  Serious: No
  Sender: FDA-Public Use
  Company Number: A0736977A

PATIENT
  Age: 70 Year
  Sex: Male

DRUGS (3)
  1. REQUIP [Suspect]
     Indication: RESTLESS LEGS SYNDROME
     Dosage: 1MG AT NIGHT
     Route: 048
     Dates: start: 20080707
  2. DIABETES MEDICATION [Concomitant]
  3. MEDICATION FOR HIGH BLOOD PRESSURE [Concomitant]

REACTIONS (2)
  - DRUG INEFFECTIVE [None]
  - EXPIRED DRUG ADMINISTERED [None]
